FAERS Safety Report 4798029-7 (Version None)
Quarter: 2005Q3

REPORT INFORMATION
  Report Type: 
  Country: None (occurrence: None)
  Receive Date: 20050929
  Receipt Date: 20050816
  Transmission Date: 20060218
  Serious: No
  Sender: FDA-Public Use
  Company Number: 05P-163-0308460

PATIENT
  Age: 78 Year
  Sex: Female
  Weight: 76.6579 kg

DRUGS (12)
  1. HUMIRA                             (ADALIMUMAB) [Suspect]
     Indication: RHEUMATOID ARTHRITIS
     Dosage: 40 MG, 1 IN 2 WK, SUBCUTANEOUS
     Route: 058
     Dates: start: 20050601
  2. METOPROLOL SUCCINATE [Concomitant]
  3. PREDNISONE [Concomitant]
  4. COUMADIN [Concomitant]
  5. AMLODIPINE BESYLATE [Concomitant]
  6. ATORVASTATIN CALCIUM [Concomitant]
  7. ASPIRIN [Concomitant]
  8. LANSOPRAZOLE [Concomitant]
  9. CALCIUM CARBONATE [Concomitant]
  10. ALENDRONATE SODIUM [Concomitant]
  11. METFORMIN HCL [Concomitant]
  12. MIRTAZAPINE [Concomitant]

REACTIONS (2)
  - ERYTHEMA [None]
  - PAIN IN EXTREMITY [None]
